FAERS Safety Report 25521885 (Version 2)
Quarter: 2025Q3

REPORT INFORMATION
  Report Type: Spontaneous
  Country: AU (occurrence: AU)
  Receive Date: 20250706
  Receipt Date: 20250810
  Transmission Date: 20251020
  Serious: Yes (Death, Hospitalization, Other)
  Sender: ALEXION PHARMACEUTICALS
  Company Number: AU-ASTRAZENECA-202507OCE001532AU

PATIENT
  Age: 69 Year
  Sex: Male

DRUGS (1)
  1. TICAGRELOR [Suspect]
     Active Substance: TICAGRELOR
     Indication: Antiplatelet therapy
     Route: 065

REACTIONS (4)
  - Subarachnoid haemorrhage [Fatal]
  - Subdural haematoma [Fatal]
  - Subarachnoid haematoma [Unknown]
  - Fall [Unknown]

NARRATIVE: CASE EVENT DATE: 20250502
